FAERS Safety Report 20093123 (Version 1)
Quarter: 2021Q4

REPORT INFORMATION
  Report Type: Report from Study
  Country: GB (occurrence: GB)
  Receive Date: 20211120
  Receipt Date: 20211120
  Transmission Date: 20220303
  Serious: Yes (Other)
  Sender: FDA-Public Use
  Company Number: GB-NOVARTISPH-NVSC2021GB004372

PATIENT
  Age: 56 Year
  Sex: Female

DRUGS (3)
  1. SANDOSTATIN LAR DEPOT [Suspect]
     Active Substance: OCTREOTIDE ACETATE
     Indication: Neuroendocrine tumour
     Dosage: 30 MG, QMO
     Route: 030
     Dates: start: 20171213
  2. SANDOSTATIN LAR DEPOT [Suspect]
     Active Substance: OCTREOTIDE ACETATE
     Dosage: 30 MG, Q4W (EVERY 28 DAYS)
     Route: 030
     Dates: start: 20171213
  3. SANDOSTATIN LAR DEPOT [Suspect]
     Active Substance: OCTREOTIDE ACETATE
     Dosage: 30 MG, Q4W (EVERY 28 DAYS)
     Route: 030

REACTIONS (18)
  - Bone cancer [Unknown]
  - Hepatic neoplasm [Unknown]
  - Second primary malignancy [Unknown]
  - Pelvic neoplasm [Unknown]
  - Flushing [Unknown]
  - Illness [Unknown]
  - Malaise [Unknown]
  - Skin lesion [Not Recovered/Not Resolved]
  - Vitamin D deficiency [Unknown]
  - Renal mass [Unknown]
  - Sinus pain [Unknown]
  - Sinusitis [Unknown]
  - Faeces pale [Unknown]
  - Diarrhoea [Unknown]
  - Steatorrhoea [Unknown]
  - Headache [Unknown]
  - Nausea [Unknown]
  - Abdominal pain upper [Unknown]

NARRATIVE: CASE EVENT DATE: 20210104
